FAERS Safety Report 8472655 (Version 2)
Quarter: 2014Q1

REPORT INFORMATION
  Report Type: Report from Study
  Country: ES (occurrence: ES)
  Receive Date: 20120322
  Receipt Date: 20140218
  Transmission Date: 20141002
  Serious: Yes (Other)
  Sender: FDA-Public Use
  Company Number: ES-JNJFOC-20120307628

PATIENT
  Age: 77 Year
  Sex: Male

DRUGS (6)
  1. USTEKINUMAB [Suspect]
     Indication: PSORIASIS
     Route: 058
     Dates: start: 20091201, end: 20110701
  2. ADIRO [Concomitant]
     Route: 048
  3. ENALAPRIL [Concomitant]
     Route: 048
  4. METFORMINA [Concomitant]
     Route: 048
  5. ATORVASTATINA [Concomitant]
     Route: 065
  6. PROSCAR [Concomitant]
     Route: 065

REACTIONS (3)
  - Basal cell carcinoma [Recovered/Resolved]
  - Subdural haematoma [Recovered/Resolved]
  - Injury [Recovered/Resolved]
